FAERS Safety Report 15857239 (Version 2)
Quarter: 2019Q1

REPORT INFORMATION
  Report Type: Spontaneous
  Country: NZ (occurrence: NZ)
  Receive Date: 20190123
  Receipt Date: 20190204
  Transmission Date: 20190417
  Serious: Yes (Hospitalization)
  Sender: FDA-Public Use
  Company Number: NZ-AMREGENT-20190073

PATIENT

DRUGS (1)
  1. FERINJECT [Suspect]
     Active Substance: FERRIC CARBOXYMALTOSE
     Dosage: 500 MG
     Route: 064
     Dates: start: 201812

REACTIONS (4)
  - Low birth weight baby [Unknown]
  - Apgar score low [Unknown]
  - Hospitalisation [Unknown]
  - Respiratory distress [Unknown]

NARRATIVE: CASE EVENT DATE: 201812
